FAERS Safety Report 11852934 (Version 2)
Quarter: 2016Q1

REPORT INFORMATION
  Report Type: Spontaneous
  Country: IT (occurrence: IT)
  Receive Date: 20151218
  Receipt Date: 20160203
  Transmission Date: 20160526
  Serious: Yes (Life-Threatening, Hospitalization, Other)
  Sender: FDA-Public Use
  Company Number: IT-MEDTRONIC-1045667

PATIENT

DRUGS (2)
  1. COMPOUNDED BACLOFEN 2000 MCG/ML [Suspect]
     Active Substance: BACLOFEN
     Indication: DYSTONIA
     Route: 037
  2. GENERAL ANESTHESIA (NOT SPECIFIED) [Suspect]
     Active Substance: UNSPECIFIED INGREDIENT
     Route: 065
     Dates: start: 20151210, end: 20151210

REACTIONS (9)
  - Overdose [Unknown]
  - Dystonia [Unknown]
  - Adverse drug reaction [Recovered/Resolved]
  - Device connection issue [None]
  - Drug interaction [None]
  - Dyspnoea [Unknown]
  - Delayed recovery from anaesthesia [Recovered/Resolved]
  - Drug withdrawal syndrome [Unknown]
  - Coma [Recovered/Resolved]

NARRATIVE: CASE EVENT DATE: 20151210
